FAERS Safety Report 16044322 (Version 1)
Quarter: 2019Q1

REPORT INFORMATION
  Report Type: Spontaneous
  Country: US (occurrence: US)
  Receive Date: 20190306
  Receipt Date: 20190306
  Transmission Date: 20190418
  Serious: Yes (Other)
  Sender: FDA-Public Use
  Company Number: US-TEIKOKU PHARMA USA-TPU2019-00147

PATIENT
  Sex: Male
  Weight: 88.08 kg

DRUGS (2)
  1. LIDODERM [Suspect]
     Active Substance: LIDOCAINE
     Indication: PAIN
     Dosage: ON HIS ELBOWS, NECK AND BACK
     Dates: start: 2012
  2. OXYCODONE [Concomitant]
     Active Substance: OXYCODONE

REACTIONS (4)
  - Surgery [Unknown]
  - Prescription drug used without a prescription [Unknown]
  - Drug effect incomplete [Unknown]
  - Expired product administered [Unknown]
